FAERS Safety Report 5875072-8 (Version None)
Quarter: 2008Q3

REPORT INFORMATION
  Report Type: 
  Country: None (occurrence: None)
  Receive Date: 20080909
  Receipt Date: 20080908
  Transmission Date: 20090109
  Serious: Yes (Death, Hospitalization, Other)
  Sender: FDA-Public Use
  Company Number: US-BRISTOL-MYERS SQUIBB COMPANY-13697263

PATIENT
  Age: 74 Year
  Sex: Male

DRUGS (18)
  1. PACLITAXEL [Suspect]
     Indication: NON-SMALL CELL LUNG CANCER
     Dosage: 373MG DAY 1 OF 21 DAY CYCLE
     Route: 042
     Dates: start: 20070201, end: 20070201
  2. CARBOPLATIN [Suspect]
     Indication: NON-SMALL CELL LUNG CANCER
     Dosage: 551MG ON DAY 1 OF 21 DAY CYCLE
     Route: 042
     Dates: start: 20070201, end: 20070201
  3. SPIRIVA [Concomitant]
     Route: 055
  4. ACEBUTOLOL [Concomitant]
     Route: 048
  5. MS CONTIN [Concomitant]
     Route: 048
     Dates: start: 20061201
  6. MORPHINE SULFATE [Concomitant]
     Dosage: Q3H PRN
     Route: 048
     Dates: start: 20061201
  7. SENOKOT [Concomitant]
     Route: 048
     Dates: start: 20061201
  8. ALBUTEROL [Concomitant]
     Route: 048
     Dates: start: 20061201
  9. ELAVIL [Concomitant]
     Route: 048
  10. LABETALOL HCL [Concomitant]
     Route: 048
  11. PLAVIX [Concomitant]
     Route: 048
  12. ZOCOR [Concomitant]
     Route: 048
  13. FLUCONAZOLE [Concomitant]
     Route: 048
     Dates: end: 20070207
  14. AMBIEN [Concomitant]
     Dosage: HS
     Route: 048
  15. LEVAQUIN [Concomitant]
     Route: 048
  16. PROCHLORPERAZINE [Concomitant]
     Dosage: 6H PRN
     Route: 048
  17. MEGACE [Concomitant]
     Dosage: 1 DOSAGE FORM=1 TSP
     Route: 048
  18. NEULASTA [Concomitant]
     Dates: start: 20070202

REACTIONS (4)
  - DEHYDRATION [None]
  - MALIGNANT NEOPLASM PROGRESSION [None]
  - NEUTROPENIA [None]
  - THROMBOCYTOPENIA [None]
